FAERS Safety Report 13070187 (Version 4)
Quarter: 2017Q1

REPORT INFORMATION
  Report Type: Report from Study
  Country: US (occurrence: US)
  Receive Date: 20161228
  Receipt Date: 20170110
  Transmission Date: 20170428
  Serious: Yes (Other)
  Sender: FDA-Public Use
  Company Number: US-ASTRAZENECA-2014SE77084

PATIENT
  Age: 927 Month
  Sex: Female
  Weight: 81.6 kg

DRUGS (27)
  1. FUROSEMIDE. [Concomitant]
     Active Substance: FUROSEMIDE
     Indication: PRODUCT USED FOR UNKNOWN INDICATION
     Route: 048
  2. ALLOPURINOL. [Concomitant]
     Active Substance: ALLOPURINOL
     Indication: PROPHYLAXIS
     Route: 048
     Dates: start: 2010
  3. PANTOPRAZOLE [Concomitant]
     Active Substance: PANTOPRAZOLE SODIUM
     Indication: PRODUCT USED FOR UNKNOWN INDICATION
     Route: 048
     Dates: start: 20140907
  4. ALBUTEROL SULFATE. [Concomitant]
     Active Substance: ALBUTEROL SULFATE
     Indication: DYSPNOEA
     Dosage: (2.5 MG/3ML) 0.083% NEBULIZATION SOLUTION, 1 VIAL BY NEBULIZER EVERY 4-6 HOURS AS NEEDED
     Dates: start: 20140722
  5. PROAIR HFA [Concomitant]
     Active Substance: ALBUTEROL SULFATE
     Dosage: 2 PUFFS AS NEEDED INHALATION EVERY 4 HRS
     Dates: start: 20141013
  6. ALLEGRA [Concomitant]
     Active Substance: FEXOFENADINE HYDROCHLORIDE
  7. LOSARTAN POTASSIUM. [Concomitant]
     Active Substance: LOSARTAN POTASSIUM
     Route: 048
  8. ATENOLOL. [Suspect]
     Active Substance: ATENOLOL
     Indication: CARDIAC DISORDER
     Route: 048
  9. POTASSIUM [Concomitant]
     Active Substance: POTASSIUM
     Route: 048
  10. VITAMIN D3 [Concomitant]
     Active Substance: CHOLECALCIFEROL
     Route: 048
     Dates: start: 20121203
  11. CITALOPRAM [Concomitant]
     Active Substance: CITALOPRAM HYDROBROMIDE
     Indication: FEELING OF RELAXATION
     Route: 048
  12. TEMAZEPAM. [Concomitant]
     Active Substance: TEMAZEPAM
     Route: 048
  13. BABY ASPIRIN [Concomitant]
     Active Substance: ASPIRIN
     Indication: PLATELET COUNT DECREASED
     Route: 048
  14. KLOR-CON [Concomitant]
     Active Substance: POTASSIUM CHLORIDE
     Route: 048
  15. SYMBICORT [Suspect]
     Active Substance: BUDESONIDE\FORMOTEROL FUMARATE DIHYDRATE
     Indication: CHRONIC OBSTRUCTIVE PULMONARY DISEASE
     Dosage: 160/4.5 MCG/ACT, ONE INHALATION BY MOUTH TWICE A DAILY
     Route: 055
     Dates: start: 20140414
  16. AMLODIPINE BESYLATE. [Concomitant]
     Active Substance: AMLODIPINE BESYLATE
     Indication: BLOOD PRESSURE ABNORMAL
     Route: 048
  17. ACETAMINOPHEN. [Concomitant]
     Active Substance: ACETAMINOPHEN
     Indication: NECK PAIN
     Route: 048
     Dates: start: 20151117
  18. AZELASTINE+FLUTICASONE [Concomitant]
     Dosage: 137-50 MCG/ACT SUSPENSION, 1 PUFF IN EACH NOSTRIL NASALLY TWICE A DAY
     Route: 045
  19. ALBUTEROL SULFATE. [Concomitant]
     Active Substance: ALBUTEROL SULFATE
     Indication: COUGH
     Dosage: (2.5 MG/3ML) 0.083% NEBULIZATION SOLUTION, 1 VIAL BY NEBULIZER EVERY 4-6 HOURS AS NEEDED
     Dates: start: 20140722
  20. VITAMIN B12 [Concomitant]
     Active Substance: CYANOCOBALAMIN
     Route: 048
  21. SYMBICORT [Suspect]
     Active Substance: BUDESONIDE\FORMOTEROL FUMARATE DIHYDRATE
     Indication: CHRONIC OBSTRUCTIVE PULMONARY DISEASE
     Dosage: 320 UG, TWO TIMES A DAY
     Route: 055
  22. LEVOTHYROXINE. [Concomitant]
     Active Substance: LEVOTHYROXINE
     Indication: THYROID DISORDER
     Route: 048
     Dates: start: 2012
  23. BABY ASPIRIN [Concomitant]
     Active Substance: ASPIRIN
     Indication: PLATELET COUNT DECREASED
     Route: 048
     Dates: start: 20121203
  24. ACETAMINOPHEN. [Concomitant]
     Active Substance: ACETAMINOPHEN
     Indication: HEADACHE
     Route: 048
     Dates: start: 20151117
  25. ALBUTEROL SULFATE. [Concomitant]
     Active Substance: ALBUTEROL SULFATE
     Indication: WHEEZING
     Dosage: (2.5 MG/3ML) 0.083% NEBULIZATION SOLUTION, 1 VIAL BY NEBULIZER EVERY 4-6 HOURS AS NEEDED
     Dates: start: 20140722
  26. ISOSORBIDE DINITRATE. [Concomitant]
     Active Substance: ISOSORBIDE DINITRATE
     Indication: CARDIAC DISORDER
     Route: 048
  27. OXYGEN. [Concomitant]
     Active Substance: OXYGEN
     Dosage: 2.0L AS REQUIRED
     Dates: start: 1996

REACTIONS (45)
  - Atrial fibrillation [Unknown]
  - Dizziness [Unknown]
  - Hyperlipidaemia [Unknown]
  - Generalised anxiety disorder [Unknown]
  - Ventricular hypokinesia [Unknown]
  - Tremor [Unknown]
  - Dyskinesia oesophageal [Unknown]
  - Depression [Unknown]
  - Cardiac failure congestive [Unknown]
  - Aortic disorder [Unknown]
  - Vertebrobasilar dolichoectasia [Unknown]
  - Chronic respiratory failure [Unknown]
  - Arteriosclerosis coronary artery [Unknown]
  - Aortic aneurysm [Unknown]
  - Vomiting [Unknown]
  - Throat lesion [Unknown]
  - Gout [Unknown]
  - Product use issue [Not Recovered/Not Resolved]
  - Drug dose omission [Not Recovered/Not Resolved]
  - Aortic dilatation [Unknown]
  - Platelet count decreased [Unknown]
  - Ecchymosis [Unknown]
  - Thrombocytopenia [Unknown]
  - Essential hypertension [Unknown]
  - Dysphonia [Not Recovered/Not Resolved]
  - Choking [Unknown]
  - Pain [Unknown]
  - Insomnia [Not Recovered/Not Resolved]
  - Productive cough [Not Recovered/Not Resolved]
  - Dyspnoea [Not Recovered/Not Resolved]
  - Myalgia [Unknown]
  - Senile osteoporosis [Unknown]
  - Sleep apnoea syndrome [Unknown]
  - Ill-defined disorder [Not Recovered/Not Resolved]
  - Ventricular tachycardia [Unknown]
  - Pulmonary hypertension [Unknown]
  - Back pain [Not Recovered/Not Resolved]
  - Cervical spinal stenosis [Unknown]
  - Dry throat [Not Recovered/Not Resolved]
  - Renal cancer stage III [Unknown]
  - Hyperventilation [Unknown]
  - Neck pain [Unknown]
  - Hypothyroidism [Unknown]
  - Cough [Not Recovered/Not Resolved]
  - Off label use [Unknown]

NARRATIVE: CASE EVENT DATE: 201404
